FAERS Safety Report 12619511 (Version 1)
Quarter: 2016Q3

REPORT INFORMATION
  Report Type: Spontaneous
  Country: BE (occurrence: BE)
  Receive Date: 20160803
  Receipt Date: 20160803
  Transmission Date: 20161109
  Serious: Yes (Other)
  Sender: FDA-Public Use
  Company Number: BE-ASTELLAS-2015US012881

PATIENT
  Age: 55 Year
  Sex: Male

DRUGS (16)
  1. POSACONAZOLE [Suspect]
     Active Substance: POSACONAZOLE
     Indication: ASPERGILLOMA
     Route: 065
     Dates: start: 2012
  2. FENTANYL                           /00174602/ [Interacting]
     Active Substance: FENTANYL
     Indication: PRODUCT USED FOR UNKNOWN INDICATION
     Dosage: UNK UNK, UNKNOWN FREQ.
     Route: 065
     Dates: start: 2012
  3. TACROLIMUS. [Suspect]
     Active Substance: TACROLIMUS
     Indication: TRANSPLANT
     Dosage: 0.5 MG, TWICE DAILY
     Route: 065
     Dates: start: 2012
  4. MYCOPHENOLATE MOFETIL. [Interacting]
     Active Substance: MYCOPHENOLATE MOFETIL
     Dosage: 500 MG, UNK
     Route: 065
  5. METHYLPREDNISOLONE. [Interacting]
     Active Substance: METHYLPREDNISOLONE
     Indication: TRANSPLANT
     Route: 042
     Dates: start: 2012
  6. MYCOPHENOLATE MOFETIL. [Interacting]
     Active Substance: MYCOPHENOLATE MOFETIL
     Indication: TRANSPLANT
     Route: 065
     Dates: start: 2012
  7. VORICONAZOLE. [Suspect]
     Active Substance: VORICONAZOLE
     Indication: ABSCESS JAW
     Route: 048
     Dates: start: 2012
  8. VALGANCICLOVIR. [Concomitant]
     Active Substance: VALGANCICLOVIR
     Indication: INFECTION PROPHYLAXIS
     Route: 065
     Dates: start: 2012
  9. METHYLPREDNISOLONE. [Interacting]
     Active Substance: METHYLPREDNISOLONE
     Route: 042
  10. POSACONAZOLE [Suspect]
     Active Substance: POSACONAZOLE
     Route: 065
  11. COTRIMOXAZOLE [Concomitant]
     Active Substance: SULFAMETHOXAZOLE\TRIMETHOPRIM
     Indication: INFECTION PROPHYLAXIS
     Dosage: 400/80 MG, ONCE DAILY
     Route: 065
     Dates: start: 2012
  12. METHYLPREDNISOLONE. [Interacting]
     Active Substance: METHYLPREDNISOLONE
     Route: 042
  13. CITALOPRAM [Interacting]
     Active Substance: CITALOPRAM HYDROBROMIDE
     Indication: PRODUCT USED FOR UNKNOWN INDICATION
     Dosage: UNK UNK, UNKNOWN FREQ.
     Route: 065
     Dates: start: 2012
  14. CASPOFUNGIN [Concomitant]
     Active Substance: CASPOFUNGIN
     Indication: PRODUCT USED FOR UNKNOWN INDICATION
     Route: 042
     Dates: start: 2012
  15. VORICONAZOLE. [Suspect]
     Active Substance: VORICONAZOLE
     Route: 048
  16. ABELCET [Suspect]
     Active Substance: AMPHOTERICIN B\DIMYRISTOYLPHOSPHATIDYLCHOLINE, DL-\DIMYRISTOYLPHOSPHATIDYLGLYCEROL, DL-
     Indication: ASPERGILLOMA
     Route: 042
     Dates: start: 2012

REACTIONS (18)
  - Abscess jaw [Unknown]
  - Stupor [Unknown]
  - Aspergilloma [Unknown]
  - Drug interaction [Unknown]
  - Glucose tolerance impaired [Unknown]
  - Pneumonia pseudomonal [Unknown]
  - Nephropathy toxic [Unknown]
  - Pseudomonas infection [Unknown]
  - Transplant rejection [Unknown]
  - Cytomegalovirus viraemia [Unknown]
  - Sinusitis bacterial [Unknown]
  - Cellulitis orbital [Unknown]
  - Osteoporosis [Unknown]
  - Hyponatraemia [Unknown]
  - Aspergillus infection [Recovered/Resolved]
  - Off label use [Unknown]
  - Inappropriate antidiuretic hormone secretion [Unknown]
  - Thoracic vertebral fracture [Unknown]

NARRATIVE: CASE EVENT DATE: 2012
